FAERS Safety Report 17056072 (Version 1)
Quarter: 2019Q4

REPORT INFORMATION
  Report Type: Spontaneous
  Country: US (occurrence: US)
  Receive Date: 20191121
  Receipt Date: 20191121
  Transmission Date: 20200122
  Serious: No
  Sender: FDA-Public Use
  Company Number: US-MTPC-MTDA2019-0078925

PATIENT

DRUGS (2)
  1. RADICAVA [Suspect]
     Active Substance: EDARAVONE
     Indication: AMYOTROPHIC LATERAL SCLEROSIS
     Dosage: 60 MG, OVER 60 MINS QD FOR 14 DAYS FOLLOWED BY 14-DAY DRUG-FREE PERIOD
     Route: 042
     Dates: start: 201812
  2. RADICAVA [Suspect]
     Active Substance: EDARAVONE
     Dosage: 60 MG, OVER 60 MINS QD FOR 10 OUT OF 14 DAYS FOLLOWED BY 14-DAY DRUG-FREE PERIODS
     Route: 042

REACTIONS (1)
  - Gastroenteritis viral [Unknown]
